FAERS Safety Report 15167856 (Version 2)
Quarter: 2018Q3

REPORT INFORMATION
  Report Type: Report from Study
  Country: DE (occurrence: DE)
  Receive Date: 20180719
  Receipt Date: 20180802
  Transmission Date: 20181010
  Serious: Yes (Death, Life-Threatening, Hospitalization, Other)
  Sender: FDA-Public Use
  Company Number: DE-TEVA-2018-DE-928158

PATIENT
  Age: 66 Year
  Sex: Male
  Weight: 73 kg

DRUGS (12)
  1. BEVACIZUMAB. [Suspect]
     Active Substance: BEVACIZUMAB
     Indication: BRONCHIAL CARCINOMA
     Route: 042
     Dates: start: 20130419, end: 20130419
  2. IBUPROFEN. [Concomitant]
     Active Substance: IBUPROFEN
     Indication: BACK PAIN
     Dosage: 600 MILLIGRAM DAILY;
     Route: 065
     Dates: end: 201304
  3. CARMEN (GERMANY) [Concomitant]
     Active Substance: LERCANIDIPINE HYDROCHLORIDE
     Indication: HYPERTENSION
     Route: 065
  4. CARBOPLATIN. [Suspect]
     Active Substance: CARBOPLATIN
     Indication: BRONCHIAL CARCINOMA
     Route: 042
     Dates: start: 20130419, end: 20130419
  5. ZOMETA [Concomitant]
     Active Substance: ZOLEDRONIC ACID
     Indication: METASTASES TO BONE
     Route: 042
     Dates: start: 20130419
  6. PEMETREXED. [Suspect]
     Active Substance: PEMETREXED
     Indication: BRONCHIAL CARCINOMA
     Route: 042
     Dates: start: 20130419, end: 20130419
  7. GRANISETRON [Concomitant]
     Active Substance: GRANISETRON
     Indication: NAUSEA
     Route: 048
     Dates: start: 20130419
  8. FOLATE [Concomitant]
     Active Substance: FOLATE SODIUM
     Route: 048
  9. LEVEMIR [Concomitant]
     Active Substance: INSULIN DETEMIR
     Indication: TYPE 2 DIABETES MELLITUS
  10. DEXAMETHASON [Concomitant]
     Active Substance: DEXAMETHASONE
     Route: 048
     Dates: start: 20130418, end: 20130420
  11. INSULIN [Concomitant]
     Active Substance: INSULIN NOS
  12. VITAMIN B12 [Concomitant]
     Active Substance: CYANOCOBALAMIN
     Route: 058
     Dates: start: 20130410

REACTIONS (14)
  - Thrombocytopenia [Recovering/Resolving]
  - Laryngitis [Unknown]
  - Coronary artery disease [Recovering/Resolving]
  - Leukopenia [Recovering/Resolving]
  - Transaminases increased [Unknown]
  - Pneumonia [Fatal]
  - Liver function test increased [Unknown]
  - Blood lactate dehydrogenase increased [Unknown]
  - Oral candidiasis [Recovered/Resolved]
  - Hypertensive crisis [Recovered/Resolved]
  - Laryngeal leukoplakia [Not Recovered/Not Resolved]
  - Diarrhoea [Recovering/Resolving]
  - Urinary tract infection [Recovering/Resolving]
  - Acute myocardial infarction [Recovered/Resolved]

NARRATIVE: CASE EVENT DATE: 20130420
